FAERS Safety Report 9060618 (Version 3)
Quarter: 2013Q2

REPORT INFORMATION
  Report Type: Spontaneous
  Country: JP (occurrence: JP)
  Receive Date: 20130211
  Receipt Date: 20130404
  Transmission Date: 20140414
  Serious: Yes (Hospitalization)
  Sender: FDA-Public Use
  Company Number: JP-ABBOTT-13P-087-1046710-00

PATIENT
  Age: 63 Year
  Sex: Male
  Weight: 75 kg

DRUGS (10)
  1. CLARITH [Suspect]
     Indication: COUGH
     Route: 048
     Dates: start: 20121212, end: 20121219
  2. SYMBICORT [Concomitant]
     Indication: COUGH
     Route: 048
     Dates: start: 20121222
  3. MAINTATE [Concomitant]
     Indication: HYPERTENSION
     Dates: start: 20120911
  4. EPADEL [Concomitant]
     Indication: PRODUCT USED FOR UNKNOWN INDICATION
     Route: 048
  5. METGLUCO [Concomitant]
     Indication: TYPE 2 DIABETES MELLITUS
     Route: 048
     Dates: start: 20120911
  6. NEUZYM [Concomitant]
     Indication: PRODUCT USED FOR UNKNOWN INDICATION
     Route: 048
  7. MUCODYNE [Concomitant]
     Indication: PRODUCT USED FOR UNKNOWN INDICATION
     Route: 048
  8. MUCOSOLVAN [Concomitant]
     Indication: PRODUCT USED FOR UNKNOWN INDICATION
     Route: 048
  9. EXFORGE [Concomitant]
     Indication: HYPERTENSION
     Dates: start: 20120911
  10. WARFARIN K [Concomitant]
     Indication: PRODUCT USED FOR UNKNOWN INDICATION
     Route: 048
     Dates: end: 20121219

REACTIONS (1)
  - Interstitial lung disease [Recovering/Resolving]
